FAERS Safety Report 5325043-5 (Version None)
Quarter: 2007Q2

REPORT INFORMATION
  Report Type: 
  Country: None (occurrence: None)
  Receive Date: 20070515
  Receipt Date: 20070508
  Transmission Date: 20071010
  Serious: Yes (Hospitalization, Other)
  Sender: FDA-Public Use
  Company Number: US-ASTRAZENECA-2006UW28666

PATIENT
  Age: 49 Year
  Sex: Male
  Weight: 122.5 kg

DRUGS (7)
  1. SEROQUEL [Suspect]
     Indication: INSOMNIA
     Route: 048
     Dates: start: 20060801, end: 20061221
  2. SEROQUEL [Suspect]
     Indication: ANXIETY
     Route: 048
     Dates: start: 20060801, end: 20061221
  3. SEROQUEL [Suspect]
     Route: 048
     Dates: start: 20070207
  4. SEROQUEL [Suspect]
     Route: 048
     Dates: start: 20070207
  5. LEXAPRO [Concomitant]
  6. LOTREL [Concomitant]
  7. ACTOS [Concomitant]

REACTIONS (28)
  - ABDOMINAL MASS [None]
  - ABDOMINAL PAIN [None]
  - ACUTE CORONARY SYNDROME [None]
  - ALCOHOL POISONING [None]
  - ALCOHOL WITHDRAWAL SYNDROME [None]
  - ARTHRALGIA [None]
  - BLOOD GLUCOSE INCREASED [None]
  - BRONCHITIS [None]
  - BURNING SENSATION [None]
  - CHEST PAIN [None]
  - CONFUSIONAL STATE [None]
  - COUGH [None]
  - ELECTROLYTE IMBALANCE [None]
  - FOOT FRACTURE [None]
  - HEADACHE [None]
  - HYPERTENSION [None]
  - JOINT SPRAIN [None]
  - LIPASE INCREASED [None]
  - MYOCARDIAL INFARCTION [None]
  - NASAL CONGESTION [None]
  - NEURALGIA [None]
  - OEDEMA PERIPHERAL [None]
  - PAIN IN EXTREMITY [None]
  - PANCREATITIS [None]
  - PELVIC PAIN [None]
  - PLEURITIC PAIN [None]
  - SYNCOPE [None]
  - VENOUS THROMBOSIS LIMB [None]
